FAERS Safety Report 25577509 (Version 2)
Quarter: 2025Q3

REPORT INFORMATION
  Report Type: Spontaneous
  Country: US (occurrence: US)
  Receive Date: 20250718
  Receipt Date: 20250718
  Transmission Date: 20251021
  Serious: No
  Sender: NOVO NORDISK
  Company Number: US-NOVOPROD-1249573

PATIENT
  Age: 68 Year
  Sex: Female

DRUGS (4)
  1. RYBELSUS [Suspect]
     Active Substance: SEMAGLUTIDE
     Indication: Glycosylated haemoglobin increased
     Dosage: 3 MG, QD (BEFORE EATING)
     Route: 048
     Dates: start: 202404, end: 20240512
  2. RYBELSUS [Suspect]
     Active Substance: SEMAGLUTIDE
     Indication: Weight control
  3. RYBELSUS [Suspect]
     Active Substance: SEMAGLUTIDE
     Indication: Glycosylated haemoglobin increased
     Route: 048
  4. RYBELSUS [Suspect]
     Active Substance: SEMAGLUTIDE
     Indication: Weight control

REACTIONS (7)
  - Brain fog [Recovered/Resolved]
  - Lethargy [Recovered/Resolved]
  - Diarrhoea [Recovered/Resolved]
  - Abdominal discomfort [Recovered/Resolved]
  - Decreased appetite [Recovered/Resolved]
  - Abdominal discomfort [Recovered/Resolved]
  - Off label use [Unknown]

NARRATIVE: CASE EVENT DATE: 20240401
